FAERS Safety Report 9516436 (Version 1)
Quarter: 2013Q3

REPORT INFORMATION
  Report Type: Spontaneous
  Country: BE (occurrence: None)
  Receive Date: 20130909
  Receipt Date: 20130909
  Transmission Date: 20140515
  Serious: Yes (Other)
  Sender: FDA-Public Use
  Company Number: AUR-APL-2013-07379

PATIENT
  Age: 44 Year
  Sex: Female

DRUGS (4)
  1. MELOXICAM [Suspect]
     Indication: PRODUCT USED FOR UNKNOWN INDICATION
  2. EFEXOR EXEL [Suspect]
     Route: 048
     Dates: start: 20120118
  3. ATENOLOL [Suspect]
  4. ASAFLOW [Suspect]

REACTIONS (2)
  - Intentional overdose [None]
  - Suicide attempt [None]
